FAERS Safety Report 6155273-4 (Version None)
Quarter: 2009Q2

REPORT INFORMATION
  Report Type: 
  Country: None (occurrence: None)
  Receive Date: 20090410
  Receipt Date: 20090410
  Transmission Date: 20091009
  Serious: Yes (Hospitalization)
  Sender: FDA-Public Use
  Company Number: None

PATIENT
  Age: 12 Year
  Sex: Male
  Weight: 36.2878 kg

DRUGS (2)
  1. DIVALPROEX SODIUM [Suspect]
     Indication: BIPOLAR I DISORDER
     Dosage: 2250MG ER EVERY MORNING PO
     Route: 048
     Dates: start: 20090220, end: 20090410
  2. DIVALPROEX SODIUM [Suspect]
     Dosage: 500MG ER BEDTIME PO
     Route: 048
     Dates: start: 20090220, end: 20090410

REACTIONS (6)
  - DRUG LEVEL DECREASED [None]
  - HYPOPHAGIA [None]
  - INSOMNIA [None]
  - MANIA [None]
  - PSYCHOMOTOR HYPERACTIVITY [None]
  - THERAPEUTIC RESPONSE UNEXPECTED WITH DRUG SUBSTITUTION [None]
